FAERS Safety Report 18176330 (Version 2)
Quarter: 2020Q3

REPORT INFORMATION
  Report Type: Spontaneous
  Country: US (occurrence: US)
  Receive Date: 20200820
  Receipt Date: 20200826
  Transmission Date: 20201103
  Serious: Yes (Death, Hospitalization)
  Sender: FDA-Public Use
  Company Number: US-NOVOPROD-746850

PATIENT
  Sex: Female

DRUGS (2)
  1. LEVEMIR [Suspect]
     Active Substance: INSULIN DETEMIR
     Indication: TYPE 1 DIABETES MELLITUS
     Dosage: 80 IU, QD AT NIGHT
     Route: 058
  2. NOVOLOG [Suspect]
     Active Substance: INSULIN ASPART
     Indication: TYPE 1 DIABETES MELLITUS
     Dosage: 100 UNITS UNDER SKIN DAILY?VARIES
     Route: 058

REACTIONS (3)
  - Chronic obstructive pulmonary disease [Fatal]
  - Cardiac failure [Fatal]
  - Hospice care [Unknown]

NARRATIVE: CASE EVENT DATE: 202007
